FAERS Safety Report 7274581-7 (Version None)
Quarter: 2011Q1

REPORT INFORMATION
  Report Type: 
  Country: None (occurrence: None)
  Receive Date: 20110202
  Receipt Date: 20110202
  Transmission Date: 20110831
  Serious: Yes (Life-Threatening, Hospitalization)
  Sender: FDA-Public Use
  Company Number: None

PATIENT
  Age: 59 Year
  Sex: Female
  Weight: 90 kg

DRUGS (1)
  1. ERIBULIN 2.8 MGIN 5.6CC EISAI [Suspect]
     Indication: BREAST CANCER
     Dosage: 1.4MGS/M2 ONCE IV BOLUS
     Route: 040
     Dates: start: 20110128, end: 20110128

REACTIONS (1)
  - SMALL INTESTINAL PERFORATION [None]
